FAERS Safety Report 6696931-2 (Version None)
Quarter: 2010Q2

REPORT INFORMATION
  Report Type: 
  Country: None (occurrence: None)
  Receive Date: 20100426
  Receipt Date: 20100415
  Transmission Date: 20101027
  Serious: Yes (Hospitalization, Other)
  Sender: FDA-Public Use
  Company Number: PHHO2010IT05765

PATIENT
  Sex: Male
  Weight: 85 kg

DRUGS (4)
  1. AFINITOR [Suspect]
     Indication: RENAL CELL CARCINOMA
     Dosage: UNK
     Route: 048
     Dates: start: 20100312, end: 20100326
  2. ALLOPURINOL [Concomitant]
     Indication: HYPERURICAEMIA
     Dosage: UNK
  3. LASIX [Concomitant]
     Indication: OEDEMA
     Dosage: UNK
  4. DEXAMETHASONE [Concomitant]
     Dosage: UNK

REACTIONS (2)
  - RETINAL HAEMORRHAGE [None]
  - VISUAL IMPAIRMENT [None]
